FAERS Safety Report 10457740 (Version 3)
Quarter: 2015Q4

REPORT INFORMATION
  Report Type: Spontaneous
  Country: US (occurrence: US)
  Receive Date: 20140916
  Receipt Date: 20151119
  Transmission Date: 20160304
  Serious: Yes (Death, Hospitalization, Other)
  Sender: FDA-Public Use
  Company Number: US-MERCK-1409USA007411

PATIENT
  Sex: Male
  Weight: 136.5 kg

DRUGS (1)
  1. JANUVIA [Suspect]
     Active Substance: SITAGLIPTIN PHOSPHATE
     Indication: TYPE 2 DIABETES MELLITUS
     Dosage: 50 MG, QD
     Route: 048
     Dates: start: 2010, end: 2012

REACTIONS (19)
  - Hypoglycaemia [Unknown]
  - Gastritis [Unknown]
  - Urinary tract infection [Unknown]
  - Death [Fatal]
  - Cardiac failure congestive [Unknown]
  - Constipation [Recovered/Resolved]
  - Atrial fibrillation [Unknown]
  - Oedema peripheral [Unknown]
  - Anaemia [Recovered/Resolved]
  - Depression [Unknown]
  - Dyskinesia [Unknown]
  - Tricuspid valve incompetence [Unknown]
  - Gastrointestinal haemorrhage [Unknown]
  - Pancreatic carcinoma metastatic [Unknown]
  - Acute respiratory failure [Recovered/Resolved]
  - Back pain [Unknown]
  - Hypoglycaemic seizure [Unknown]
  - Acute kidney injury [Recovered/Resolved]
  - Dyslipidaemia [Unknown]

NARRATIVE: CASE EVENT DATE: 201204
